FAERS Safety Report 10885842 (Version 1)
Quarter: 2015Q1

REPORT INFORMATION
  Report Type: Spontaneous
  Country: JP (occurrence: None)
  Receive Date: 20150302
  Receipt Date: 20150302
  Transmission Date: 20150721
  Serious: Yes (Other)
  Sender: FDA-Public Use
  Company Number: ABR_02069_2015

PATIENT
  Age: 73 Year
  Sex: Female

DRUGS (1)
  1. GLIADEL [Suspect]
     Active Substance: CARMUSTINE
     Indication: MALIGNANT GLIOMA
     Dosage: 6 DF TOTAL INTRACEREBRAL
     Dates: start: 20140509

REACTIONS (3)
  - Hemiplegia [None]
  - Pneumocephalus [None]
  - Condition aggravated [None]

NARRATIVE: CASE EVENT DATE: 20140510
